FAERS Safety Report 21863502 (Version 1)
Quarter: 2023Q1

REPORT INFORMATION
  Report Type: Spontaneous
  Country: US (occurrence: US)
  Receive Date: 20230115
  Receipt Date: 20230115
  Transmission Date: 20230417
  Serious: Yes (Other)
  Sender: FDA-Public Use
  Company Number: US-JNJFOC-20230117486

PATIENT
  Sex: Male

DRUGS (5)
  1. RISPERDAL [Suspect]
     Active Substance: RISPERIDONE
     Indication: Product used for unknown indication
     Route: 048
  2. RISPERDAL [Suspect]
     Active Substance: RISPERIDONE
     Route: 048
  3. RISPERDAL [Suspect]
     Active Substance: RISPERIDONE
     Dosage: 3 MG (1.5 (HALF) TABLET EVERY MORNING, AND 1.5 (HALF) TABLET AT NOON AND 3 MG AT BEDTIME)
     Route: 048
     Dates: start: 2010
  4. RISPERDAL [Suspect]
     Active Substance: RISPERIDONE
     Dosage: INCREASE RISPERIDONE FROM 1 TWICE DAILY TO 1 MG AM AND 2 MG PM
     Route: 048
  5. RISPERIDONE [Suspect]
     Active Substance: RISPERIDONE
     Indication: Product used for unknown indication
     Route: 048

REACTIONS (3)
  - Hyperprolactinaemia [Unknown]
  - Weight increased [Recovering/Resolving]
  - Off label use [Unknown]

NARRATIVE: CASE EVENT DATE: 20100101
